FAERS Safety Report 9396059 (Version 6)
Quarter: 2015Q1

REPORT INFORMATION
  Report Type: Spontaneous
  Country: US (occurrence: US)
  Receive Date: 20130711
  Receipt Date: 20150225
  Transmission Date: 20150721
  Serious: Yes (Hospitalization, Other)
  Sender: FDA-Public Use
  Company Number: US-009507513-1307USA004404

PATIENT
  Sex: Female
  Weight: 50.79 kg

DRUGS (11)
  1. NORETHINDRONE. [Concomitant]
     Active Substance: NORETHINDRONE
     Indication: CONTRACEPTION
     Dosage: 0.35 MG, QD
     Route: 048
     Dates: start: 2000
  2. SPIRONOLACTONE. [Concomitant]
     Active Substance: SPIRONOLACTONE
     Indication: CARDIAC FAILURE CONGESTIVE
     Dosage: 25 MG, QD
     Route: 048
     Dates: start: 2000
  3. VITAMINS (UNSPECIFIED) [Concomitant]
     Active Substance: VITAMINS
     Dosage: 1 DF, QD
     Dates: start: 1999
  4. VITAMIN D [Concomitant]
     Active Substance: CHOLECALCIFEROL
     Dosage: 1000-2000 IU, QD
     Route: 048
     Dates: start: 1999
  5. FOSAMAX [Suspect]
     Active Substance: ALENDRONATE SODIUM
     Indication: OSTEOPOROSIS
     Dosage: 10 MG, QD
     Route: 048
     Dates: start: 2000, end: 2008
  6. FOSAMAX [Suspect]
     Active Substance: ALENDRONATE SODIUM
     Dosage: 70 MG, QW
     Route: 048
     Dates: start: 2000, end: 20080210
  7. FUROSEMIDE. [Concomitant]
     Active Substance: FUROSEMIDE
     Indication: CARDIAC FAILURE CONGESTIVE
     Dosage: 20-40 MG QD
     Route: 048
     Dates: start: 2000
  8. LISINOPRIL. [Concomitant]
     Active Substance: LISINOPRIL
     Indication: CARDIAC FAILURE CONGESTIVE
     Dosage: 2.5 MG, BID
     Route: 048
     Dates: start: 2000
  9. ALENDRONATE SODIUM. [Suspect]
     Active Substance: ALENDRONATE SODIUM
     Indication: OSTEOPOROSIS
     Dosage: 70 MG, QW
     Route: 048
     Dates: start: 20080310, end: 20101020
  10. CALCIUM (UNSPECIFIED) [Concomitant]
     Active Substance: CALCIUM
     Dosage: 1200 MG, UNK
     Route: 048
     Dates: start: 1999
  11. MAGNESIUM (UNSPECIFIED) [Concomitant]
     Active Substance: MAGNESIUM
     Dosage: 400-500 MG, QD
     Route: 048
     Dates: start: 1999

REACTIONS (28)
  - Heart rate irregular [Unknown]
  - Femur fracture [Unknown]
  - Incision site infection [Unknown]
  - Cholecystectomy [Unknown]
  - Lung hyperinflation [Unknown]
  - Abdominal pain [Unknown]
  - Diarrhoea [Unknown]
  - Internal fixation of fracture [Unknown]
  - Foot fracture [Unknown]
  - Bone disorder [Recovered/Resolved]
  - Steatorrhoea [Unknown]
  - Medical device removal [Unknown]
  - Cardiac murmur [Unknown]
  - Animal bite [Unknown]
  - Endocarditis [Unknown]
  - Asthma [Unknown]
  - Abdominal distension [Unknown]
  - Limb operation [Unknown]
  - Cardiac aneurysm [Unknown]
  - Cardiac operation [Unknown]
  - Viral infection [Unknown]
  - Hypothyroidism [Unknown]
  - Raynaud^s phenomenon [Unknown]
  - Intramedullary rod insertion [Unknown]
  - Femur fracture [Unknown]
  - Anxiety [Unknown]
  - Cold urticaria [Unknown]
  - Pyrexia [Unknown]

NARRATIVE: CASE EVENT DATE: 2000
